FAERS Safety Report 15575847 (Version 1)
Quarter: 2018Q4

REPORT INFORMATION
  Report Type: Spontaneous
  Country: DE (occurrence: DE)
  Receive Date: 20181101
  Receipt Date: 20181101
  Transmission Date: 20190205
  Serious: Yes (Hospitalization, Other)
  Sender: FDA-Public Use
  Company Number: DE-SA-2018SA298926

PATIENT
  Age: 33 Year
  Sex: Male

DRUGS (6)
  1. FLUSPIRILENE [Concomitant]
     Active Substance: FLUSPIRILENE
     Indication: DEPRESSION
  2. ZOLPIDEM TARTRATE. [Suspect]
     Active Substance: ZOLPIDEM TARTRATE
     Indication: INSOMNIA
     Dosage: 80 TO100 MG, TOTAL
     Route: 048
  3. ZOLPIDEM TARTRATE. [Suspect]
     Active Substance: ZOLPIDEM TARTRATE
     Dosage: 30 MG
     Route: 048
  4. ZOLPIDEM TARTRATE. [Suspect]
     Active Substance: ZOLPIDEM TARTRATE
     Dosage: 150 TO 280MG, QD
  5. ZOLPIDEM TARTRATE. [Suspect]
     Active Substance: ZOLPIDEM TARTRATE
     Dosage: 10 MG, QD
  6. ZOLPIDEM TARTRATE. [Suspect]
     Active Substance: ZOLPIDEM TARTRATE
     Dosage: DOSE WAS REDUCED

REACTIONS (9)
  - Ataxia [Unknown]
  - Drug tolerance [Unknown]
  - Generalised tonic-clonic seizure [Unknown]
  - Apathy [Unknown]
  - Anterograde amnesia [Unknown]
  - Depression [Unknown]
  - Drug abuse [Unknown]
  - Drug dependence [Unknown]
  - Intentional overdose [Unknown]
